FAERS Safety Report 22161642 (Version 1)
Quarter: 2023Q1

REPORT INFORMATION
  Report Type: Spontaneous
  Country: FR (occurrence: FR)
  Receive Date: 20230331
  Receipt Date: 20230331
  Transmission Date: 20230418
  Serious: Yes (Other)
  Sender: FDA-Public Use
  Company Number: None

PATIENT
  Age: 42 Year
  Sex: Female
  Weight: 61 kg

DRUGS (2)
  1. CLINDAMYCIN [Suspect]
     Active Substance: CLINDAMYCIN
     Indication: Propionibacterium infection
     Dosage: 1X/D, 300MG 3X/D OR 3 CAPSULES/D
     Route: 048
     Dates: start: 20221204
  2. CUBICIN [Suspect]
     Active Substance: DAPTOMYCIN
     Indication: Propionibacterium infection
     Dosage: 600MG 1X/D
     Route: 042
     Dates: start: 20221115, end: 20221204

REACTIONS (1)
  - Neutropenia [Recovering/Resolving]

NARRATIVE: CASE EVENT DATE: 20221213
